FAERS Safety Report 6451478-3 (Version None)
Quarter: 2009Q4

REPORT INFORMATION
  Report Type: 
  Country: None (occurrence: None)
  Receive Date: 20091123
  Receipt Date: 20090506
  Transmission Date: 20100525
  Serious: No
  Sender: FDA-Public Use
  Company Number: US-BRISTOL-MYERS SQUIBB COMPANY-14596423

PATIENT
  Age: 68 Year
  Sex: Female

DRUGS (2)
  1. AVALIDE [Suspect]
     Indication: THROMBOSIS
     Dosage: 1 DF= 1 TABLET; DURATION OF THERAPY:10-11 YEARS
  2. ASPIRIN [Suspect]
     Dosage: DECREASED TO 81MG

REACTIONS (3)
  - DEVICE OCCLUSION [None]
  - HYPOTENSION [None]
  - SYNCOPE [None]
